FAERS Safety Report 10715362 (Version 1)
Quarter: 2015Q1

REPORT INFORMATION
  Report Type: Spontaneous
  Country: DE (occurrence: DE)
  Receive Date: 20150116
  Receipt Date: 20150116
  Transmission Date: 20150721
  Serious: Yes (Other)
  Sender: FDA-Public Use
  Company Number: DE-PFIZER INC-2014345116

PATIENT
  Age: 84 Year
  Sex: Female
  Weight: 48 kg

DRUGS (8)
  1. ENAHEXAL [Concomitant]
     Active Substance: ENALAPRIL MALEATE
  2. SORTIS [Concomitant]
     Active Substance: ATORVASTATIN
  3. BRONCHORETARD [Concomitant]
  4. OXIS [Concomitant]
     Active Substance: FORMOTEROL FUMARATE
  5. LATANOPROST PFIZER [Suspect]
     Active Substance: LATANOPROST
     Indication: GLAUCOMA
     Dosage: 1 GTT, 1X/DAY IN BOTH EYES
     Dates: start: 20141212, end: 20141213
  6. BIOLAN [Concomitant]
     Dosage: UNK
  7. VIANI [Concomitant]
     Active Substance: FLUTICASONE PROPIONATE\SALMETEROL XINAFOATE
  8. PREDNI H [Concomitant]
     Active Substance: PREDNISOLONE

REACTIONS (4)
  - Eye irritation [Recovered/Resolved]
  - Product substitution issue [Recovered/Resolved]
  - Lacrimation increased [Recovered/Resolved]
  - Visual acuity reduced [Recovered/Resolved]

NARRATIVE: CASE EVENT DATE: 20141213
